FAERS Safety Report 4933544-4 (Version None)
Quarter: 2006Q1

REPORT INFORMATION
  Report Type: 
  Country: None (occurrence: None)
  Receive Date: 20060117
  Receipt Date: 20051118
  Transmission Date: 20060701
  Serious: Yes (Other)
  Sender: FDA-Public Use
  Company Number: 2005060744

PATIENT
  Age: 22 Year
  Sex: Female

DRUGS (2)
  1. MACUGEN [Suspect]
     Indication: HISTOPLASMOSIS
     Dosage: (INTERVAL: EVERY 6 WEEKS)
     Dates: start: 20050201, end: 20050601
  2. MACUGEN [Suspect]
     Indication: MACULAR DEGENERATION
     Dosage: (INTERVAL: EVERY 6 WEEKS)
     Dates: start: 20050201, end: 20050601

REACTIONS (2)
  - MENSTRUAL DISORDER [None]
  - SINUSITIS [None]
